FAERS Safety Report 9769752 (Version 1)
Quarter: 2013Q4

REPORT INFORMATION
  Report Type: Spontaneous
  Country: US (occurrence: None)
  Receive Date: 20131216
  Receipt Date: 20131216
  Transmission Date: 20140711
  Serious: Yes (Life-Threatening)
  Sender: FDA-Public Use
  Company Number: US-ALKEM-000431

PATIENT
  Age: 68 Year
  Sex: Female

DRUGS (3)
  1. HYDRALAZINE [Suspect]
     Indication: HYPERTENSION
  2. HYDRALAZINE [Suspect]
     Indication: ATRIAL FIBRILLATION
  3. COUMADIN [Suspect]
     Indication: ATRIAL FIBRILLATION

REACTIONS (5)
  - Lupus-like syndrome [None]
  - Cardiac tamponade [None]
  - Anaemia [None]
  - International normalised ratio increased [None]
  - Pericardial effusion [None]
